FAERS Safety Report 6862228-0 (Version None)
Quarter: 2010Q3

REPORT INFORMATION
  Report Type: 
  Country: None (occurrence: None)
  Receive Date: 20100721
  Receipt Date: 20100709
  Transmission Date: 20110219
  Serious: Yes (Hospitalization)
  Sender: FDA-Public Use
  Company Number: PHHY2010US45818

PATIENT
  Sex: Male
  Weight: 104 kg

DRUGS (8)
  1. EXJADE [Suspect]
     Indication: MYELODYSPLASTIC SYNDROME
     Dosage: 1000 MG, BID
     Route: 048
     Dates: start: 20100623
  2. LEVAQUIN [Concomitant]
  3. PREDNISONE [Concomitant]
  4. NEXIUM [Concomitant]
  5. ACYCLOVIR [Concomitant]
  6. ZYRTEC [Concomitant]
  7. VITAMIN B6 [Concomitant]
  8. DAPSONE [Concomitant]

REACTIONS (1)
  - SEPSIS [None]
